FAERS Safety Report 5041189-3 (Version None)
Quarter: 2006Q3

REPORT INFORMATION
  Report Type: 
  Country: None (occurrence: None)
  Receive Date: 20060703
  Receipt Date: 20060627
  Transmission Date: 20061208
  Serious: Yes (Hospitalization)
  Sender: FDA-Public Use
  Company Number: US-GLAXOSMITHKLINE-A0610818A

PATIENT
  Sex: Female
  Weight: 4.3 kg

DRUGS (1)
  1. SUMATRIPTAN SUCCINATE [Suspect]
     Indication: MIGRAINE
     Dosage: 100MG PER DAY
     Dates: start: 20051001, end: 20051001

REACTIONS (4)
  - DRUG EXPOSURE DURING PREGNANCY [None]
  - HYPOXIA [None]
  - NEONATAL ASPIRATION [None]
  - OXYGEN SATURATION DECREASED [None]
